FAERS Safety Report 8949472 (Version 1)
Quarter: 2012Q4

REPORT INFORMATION
  Report Type: 
  Country: US (occurrence: US)
  Receive Date: 20121206
  Receipt Date: 20121206
  Transmission Date: 20130627
  Serious: Yes (Other)
  Sender: FDA-Public Use
  Company Number: US-TEVA-368060USA

PATIENT
  Sex: Female

DRUGS (7)
  1. TREANDA [Suspect]
     Indication: NON-HODGKIN^S LYMPHOMA UNSPECIFIED HISTOLOGY INDOLENT
     Route: 042
  2. RITUXIMAB [Concomitant]
  3. LEVOTHYROXINE [Concomitant]
  4. CITALOPRAM [Concomitant]
  5. ALPRAZOLAM [Concomitant]
     Dosage: 1 Milligram Daily;
  6. IMODIUM [Concomitant]
  7. OXYCODONE [Concomitant]
     Dosage: 5/325 mg

REACTIONS (6)
  - Abdominal pain [Recovered/Resolved]
  - Muscle spasms [Recovered/Resolved]
  - Asthenia [Unknown]
  - Dehydration [Unknown]
  - Diarrhoea [Recovered/Resolved]
  - Back pain [Unknown]
